FAERS Safety Report 9476276 (Version 1)
Quarter: 2013Q3

REPORT INFORMATION
  Report Type: Spontaneous
  Country: US (occurrence: None)
  Receive Date: 20130823
  Receipt Date: 20130823
  Transmission Date: 20140515
  Serious: Yes (Hospitalization)
  Sender: FDA-Public Use
  Company Number: None

PATIENT
  Age: 49 Year
  Sex: Male

DRUGS (1)
  1. RIBAVIRIN [Suspect]
     Indication: HEPATITIS C
     Dosage: 600MG 2 TIMES A DAY BY MOUTH
     Route: 048
     Dates: start: 20130430

REACTIONS (4)
  - Scrotal infection [None]
  - Pruritus genital [None]
  - Staphylococcal infection [None]
  - Pruritus [None]
